FAERS Safety Report 4801986-3 (Version None)
Quarter: 2005Q4

REPORT INFORMATION
  Report Type: 
  Country: None (occurrence: None)
  Receive Date: 20051014
  Receipt Date: 20051014
  Transmission Date: 20060501
  Serious: Yes (Other)
  Sender: FDA-Public Use
  Company Number: None

PATIENT
  Sex: Female
  Weight: 97.0698 kg

DRUGS (2)
  1. FENTANYL [Suspect]
     Indication: BACK PAIN
     Dosage: 50 MCG Q72
     Dates: start: 20050902, end: 20050928
  2. FENTANYL [Suspect]
     Indication: FIBROMYALGIA
     Dosage: 50 MCG Q72
     Dates: start: 20050902, end: 20050928

REACTIONS (1)
  - DERMATITIS [None]
